FAERS Safety Report 5378303-6 (Version None)
Quarter: 2007Q3

REPORT INFORMATION
  Report Type: 
  Country: None (occurrence: None)
  Receive Date: 20070702
  Receipt Date: 20070625
  Transmission Date: 20080115
  Serious: Yes (Hospitalization, Other)
  Sender: FDA-Public Use
  Company Number: ES-1163375

PATIENT
  Age: 36 Year
  Sex: Male

DRUGS (8)
  1. TRAVATAN [Suspect]
     Indication: GLAUCOMA
     Dosage: EYE DROPS, SOLUTION, QD, OPHTHALMIC
     Route: 047
     Dates: start: 20040101
  2. DACORTIN(PREDNISONE) [Concomitant]
  3. PARLET(RABEPRAZOLE SODIUM) [Concomitant]
  4. DURAGESIC-100 [Concomitant]
  5. TIMOFTOL(TIMOLOL MALEATE) [Concomitant]
  6. CLAVERSAL(MESALAZINE) [Concomitant]
  7. NATECAL(CALCIUM CARBONATE) [Concomitant]
  8. ACTONEL [Concomitant]

REACTIONS (1)
  - GYNAECOMASTIA [None]
